FAERS Safety Report 5675064-8 (Version None)
Quarter: 2008Q1

REPORT INFORMATION
  Report Type: 
  Country: None (occurrence: None)
  Receive Date: 20080320
  Receipt Date: 20080311
  Transmission Date: 20080703
  Serious: Yes (Disabling)
  Sender: FDA-Public Use
  Company Number: GB-BAYER-200810656BNE

PATIENT
  Age: 31 Year
  Sex: Female

DRUGS (5)
  1. MICROGYNON [Interacting]
     Indication: CONTRACEPTION
     Dates: start: 20040101
  2. NIFEDIPINE [Suspect]
     Indication: INSOMNIA
     Dates: start: 20040101
  3. AMITRIPTYLINE HCL [Interacting]
     Indication: DEPRESSION
     Dates: end: 20080204
  4. CALCICHEW [Interacting]
     Indication: OSTEOPENIA
     Dates: start: 19980101
  5. PROVIGIL [Interacting]
     Indication: FATIGUE
     Route: 048
     Dates: start: 20050201

REACTIONS (8)
  - ERYTHEMA [None]
  - LUPUS-LIKE SYNDROME [None]
  - MUSCULOSKELETAL STIFFNESS [None]
  - PAIN [None]
  - RASH [None]
  - RASH ERYTHEMATOUS [None]
  - SKIN LESION [None]
  - SWELLING [None]
